FAERS Safety Report 20289526 (Version 2)
Quarter: 2022Q1

REPORT INFORMATION
  Report Type: Report from Study
  Country: FR (occurrence: FR)
  Receive Date: 20220104
  Receipt Date: 20220117
  Transmission Date: 20220423
  Serious: Yes (Death)
  Sender: FDA-Public Use
  Company Number: FR-NOVARTISPH-NVSC2021FR300516

PATIENT
  Age: 86 Year
  Sex: Female

DRUGS (1)
  1. CAPMATINIB [Suspect]
     Active Substance: CAPMATINIB
     Indication: Lung neoplasm malignant
     Dosage: 400 MG, 2 DOSES OF 200MG
     Route: 048
     Dates: start: 20210914

REACTIONS (2)
  - Neoplasm malignant [Fatal]
  - General physical health deterioration [Fatal]
